FAERS Safety Report 7353523-X (Version None)
Quarter: 2011Q1

REPORT INFORMATION
  Report Type: 
  Country: None (occurrence: None)
  Receive Date: 20110307
  Receipt Date: 20100517
  Transmission Date: 20110831
  Serious: No
  Sender: FDA-Public Use
  Company Number: AEUSA21000170

PATIENT
  Age: 61 Year
  Sex: Female

DRUGS (5)
  1. PROLASTIN [Suspect]
     Indication: ALPHA-1 ANTI-TRYPSIN DEFICIENCY
     Dosage: ;IV
     Route: 042
     Dates: start: 19970123, end: 20100401
  2. BENADRYL /00000402/ [Concomitant]
  3. PEPCID [Concomitant]
  4. ASPIRIN /00002703/ [Concomitant]
  5. PROLASTIN-C [Suspect]
     Indication: ALPHA-1 ANTI-TRYPSIN DEFICIENCY
     Dosage: ;IV
     Route: 042
     Dates: start: 20100409

REACTIONS (3)
  - HEADACHE [None]
  - CONDITION AGGRAVATED [None]
  - DYSPNOEA [None]
